FAERS Safety Report 5551596-8 (Version None)
Quarter: 2007Q4

REPORT INFORMATION
  Report Type: 
  Country: None (occurrence: None)
  Receive Date: 20071129
  Receipt Date: 20070515
  Transmission Date: 20080405
  Serious: Yes (Hospitalization)
  Sender: FDA-Public Use
  Company Number: US200605005843

PATIENT
  Age: 43 Year
  Sex: Female
  Weight: 104.3 kg

DRUGS (1)
  1. ZYPREXA [Suspect]
     Dosage: 10 MG,
     Dates: start: 19950101, end: 20001201

REACTIONS (3)
  - DIABETES MELLITUS [None]
  - OBESITY [None]
  - TRANSIENT ISCHAEMIC ATTACK [None]
